FAERS Safety Report 9224697 (Version 2)
Quarter: 2013Q2

REPORT INFORMATION
  Report Type: Spontaneous
  Country: DE (occurrence: DE)
  Receive Date: 20130411
  Receipt Date: 20130415
  Transmission Date: 20140414
  Serious: Yes (Life-Threatening, Disabling, Other)
  Sender: FDA-Public Use
  Company Number: DE-PFIZER INC-2013113744

PATIENT
  Age: 65 Year
  Sex: Female

DRUGS (1)
  1. AMIODARONE HCL [Suspect]
     Indication: ATRIAL FIBRILLATION
     Dosage: 1X200 MG PER DAY
     Route: 048
     Dates: start: 2006, end: 20091023

REACTIONS (3)
  - Guillain-Barre syndrome [Unknown]
  - Acute respiratory distress syndrome [Recovered/Resolved with Sequelae]
  - Pulmonary fibrosis [Recovered/Resolved with Sequelae]
